FAERS Safety Report 25481577 (Version 1)
Quarter: 2025Q2

REPORT INFORMATION
  Report Type: Spontaneous
  Country: FR (occurrence: FR)
  Receive Date: 20250626
  Receipt Date: 20250626
  Transmission Date: 20250717
  Serious: Yes (Hospitalization)
  Sender: NOVO NORDISK
  Company Number: FR-NOVOPROD-1461817

PATIENT
  Sex: Male

DRUGS (1)
  1. FIASP [Suspect]
     Active Substance: INSULIN ASPART
     Indication: Diabetes mellitus
     Route: 058

REACTIONS (1)
  - Hospitalisation [Unknown]
